FAERS Safety Report 8390146-8 (Version None)
Quarter: 2012Q2

REPORT INFORMATION
  Report Type: 
  Country: None (occurrence: None)
  Receive Date: 20120529
  Receipt Date: 20120523
  Transmission Date: 20120825
  Serious: Yes (Hospitalization)
  Sender: FDA-Public Use
  Company Number: DE-PFIZER INC-2012089902

PATIENT
  Age: 48 Year
  Sex: Female
  Weight: 75.4 kg

DRUGS (1)
  1. VENLAFAXINE HCL [Suspect]
     Indication: DEPRESSION
     Dosage: 150 MG, PER DAY
     Route: 048
     Dates: start: 20120331, end: 20120410

REACTIONS (1)
  - HAEMATOMA [None]
